FAERS Safety Report 8256592-8 (Version None)
Quarter: 2012Q2

REPORT INFORMATION
  Report Type: 
  Country: None (occurrence: None)
  Receive Date: 20120403
  Receipt Date: 20120402
  Transmission Date: 20120825
  Serious: No
  Sender: FDA-Public Use
  Company Number: US-PFIZER INC-2012083312

PATIENT
  Sex: Male
  Weight: 95.238 kg

DRUGS (2)
  1. NIASPAN [Concomitant]
     Indication: BLOOD CHOLESTEROL INCREASED
     Dosage: 50 MG, DAILY
  2. ZOLOFT [Suspect]
     Indication: DEPRESSION
     Dosage: 50 MG, DAILY
     Dates: start: 20111201

REACTIONS (3)
  - RASH PAPULAR [None]
  - TONGUE DISORDER [None]
  - GINGIVAL SWELLING [None]
